FAERS Safety Report 8065270-X (Version None)
Quarter: 2012Q1

REPORT INFORMATION
  Report Type: 
  Country: None (occurrence: None)
  Receive Date: 20120111
  Receipt Date: 20111228
  Transmission Date: 20120608
  Serious: Yes (Other)
  Sender: FDA-Public Use
  Company Number: CA-145270

PATIENT
  Sex: Male
  Weight: 48 kg

DRUGS (8)
  1. PEGINTERFERON ALFA-2A [Concomitant]
  2. APO-CYCLOSPORINE [Concomitant]
  3. ERYTHROMPOIETIN [Concomitant]
  4. WINRHO SDF [Suspect]
     Indication: IDIOPATHIC THROMBOCYTOPENIC PURPURA
     Dosage: (73 UG/KG TOTAL)
     Dates: start: 20111215, end: 20111215
  5. WINRHO SDF [Suspect]
     Indication: IDIOPATHIC THROMBOCYTOPENIC PURPURA
     Dosage: (73 UG/KG TOTAL)
     Dates: start: 20111215, end: 20111215
  6. WINRHO SDF [Suspect]
  7. RIBAVIRIN [Concomitant]
  8. PREDNISONE [Concomitant]

REACTIONS (8)
  - CHILLS [None]
  - BLOOD BILIRUBIN INCREASED [None]
  - HAEMOGLOBIN DECREASED [None]
  - BLOOD LACTATE DEHYDROGENASE INCREASED [None]
  - HAEMOLYTIC TRANSFUSION REACTION [None]
  - BLOOD URINE PRESENT [None]
  - ANAEMIA [None]
  - HAPTOGLOBIN DECREASED [None]
